FAERS Safety Report 8586451 (Version 3)
Quarter: 2013Q4

REPORT INFORMATION
  Report Type: Report from Study
  Country: JP (occurrence: JP)
  Receive Date: 20120530
  Receipt Date: 20131118
  Transmission Date: 20140711
  Serious: Yes (Hospitalization)
  Sender: FDA-Public Use
  Company Number: JP-EISAI INC-E7389-02497-CLI-JP

PATIENT
  Age: 61 Year
  Sex: Male
  Weight: 57 kg

DRUGS (3)
  1. E7389 (BOLD) [Suspect]
     Indication: LUNG NEOPLASM MALIGNANT
     Route: 041
     Dates: start: 20120327, end: 20120424
  2. E7389 (BOLD) [Suspect]
     Route: 041
     Dates: start: 20120306, end: 20120313
  3. MEDICON [Concomitant]
     Indication: COUGH
     Route: 048
     Dates: start: 20120310, end: 20120522

REACTIONS (1)
  - Pneumothorax [Recovering/Resolving]
